FAERS Safety Report 9491225 (Version 2)
Quarter: 2013Q3

REPORT INFORMATION
  Report Type: Report from Study
  Country: KR (occurrence: KR)
  Receive Date: 20130830
  Receipt Date: 20130905
  Transmission Date: 20140515
  Serious: Yes (Other)
  Sender: FDA-Public Use
  Company Number: KR-PFIZER INC-2013250022

PATIENT
  Sex: Male

DRUGS (2)
  1. AMIODARONE HCL [Suspect]
     Indication: ATRIAL FIBRILLATION
     Dosage: 200 MG DAILY
     Route: 065
  2. ISOPROTERENOL [Concomitant]
     Dosage: UNK

REACTIONS (1)
  - Sick sinus syndrome [Unknown]
